FAERS Safety Report 14424044 (Version 2)
Quarter: 2018Q2

REPORT INFORMATION
  Report Type: Spontaneous
  Country: FR (occurrence: FR)
  Receive Date: 20180123
  Receipt Date: 20180503
  Transmission Date: 20180711
  Serious: Yes (Other)
  Sender: FDA-Public Use
  Company Number: PHHY2018FR008202

PATIENT
  Age: 65 Year
  Sex: Female

DRUGS (8)
  1. PRAMIPEXOLE. [Suspect]
     Active Substance: PRAMIPEXOLE
     Indication: RESTLESS LEGS SYNDROME
     Dosage: UNK
     Route: 065
  2. LEVODOPA [Suspect]
     Active Substance: LEVODOPA
     Indication: RESTLESS LEGS SYNDROME
     Dosage: UNK
     Route: 065
  3. PREGABALIN. [Concomitant]
     Active Substance: PREGABALIN
     Indication: RESTLESS LEGS SYNDROME
     Dosage: UNK
     Route: 065
  4. CLONAZEPAM. [Concomitant]
     Active Substance: CLONAZEPAM
     Indication: RESTLESS LEGS SYNDROME
     Dosage: UNK
     Route: 065
  5. ROTIGOTINE [Suspect]
     Active Substance: ROTIGOTINE
     Indication: RESTLESS LEGS SYNDROME
     Dosage: UNK
     Route: 065
  6. ROPINIROLE. [Suspect]
     Active Substance: ROPINIROLE
     Indication: RESTLESS LEGS SYNDROME
     Dosage: UNK
     Route: 065
  7. GABAPENTIN. [Concomitant]
     Active Substance: GABAPENTIN
     Indication: RESTLESS LEGS SYNDROME
     Dosage: UNK
     Route: 065
  8. CARBAMAZEPINE. [Concomitant]
     Active Substance: CARBAMAZEPINE
     Indication: RESTLESS LEGS SYNDROME
     Dosage: UNK
     Route: 065

REACTIONS (3)
  - Binge eating [Unknown]
  - Compulsive shopping [Unknown]
  - Product use in unapproved indication [Unknown]
